FAERS Safety Report 5532429-2 (Version None)
Quarter: 2007Q4

REPORT INFORMATION
  Report Type: 
  Country: None (occurrence: None)
  Receive Date: 20071203
  Receipt Date: 20071121
  Transmission Date: 20080405
  Serious: Yes (Other)
  Sender: FDA-Public Use
  Company Number: US-PFIZER INC-2007075524

PATIENT
  Sex: Female
  Weight: 49.4 kg

DRUGS (4)
  1. CHANTIX [Suspect]
     Indication: SMOKING CESSATION THERAPY
  2. LORTAB [Concomitant]
  3. MOTRIN [Concomitant]
  4. VITAMINS [Concomitant]

REACTIONS (1)
  - HYSTERECTOMY [None]
